FAERS Safety Report 5435984-6 (Version None)
Quarter: 2007Q3

REPORT INFORMATION
  Report Type: 
  Country: None (occurrence: None)
  Receive Date: 20070831
  Receipt Date: 20070823
  Transmission Date: 20080115
  Serious: Yes (Other)
  Sender: FDA-Public Use
  Company Number: A0658722A

PATIENT
  Age: 68 Year
  Sex: Female

DRUGS (25)
  1. COREG [Suspect]
     Dosage: 25MG TWICE PER DAY
     Route: 065
     Dates: start: 19990101, end: 20070601
  2. COREG CR [Suspect]
     Dosage: 80MG AT NIGHT
     Route: 048
     Dates: start: 20070601
  3. DIGOXIN [Concomitant]
  4. CAPTOPRIL [Concomitant]
  5. LASIX [Concomitant]
  6. POTASSIUM CHLORIDE [Concomitant]
  7. PAXIL [Concomitant]
  8. METHOTREXATE [Concomitant]
  9. BENTYL [Concomitant]
  10. FOLIC ACID [Concomitant]
  11. THEO [Concomitant]
  12. NEXIUM [Concomitant]
  13. ALLEGRA [Concomitant]
  14. PREDNISONE [Concomitant]
  15. MUCINEX [Concomitant]
  16. ASPIRIN [Concomitant]
  17. SENOKOT [Concomitant]
  18. STOOL SOFTENER [Concomitant]
  19. COMBIVENT [Concomitant]
  20. LORAZEPAM [Concomitant]
  21. ACTOS [Concomitant]
  22. METFORMIN HCL [Concomitant]
  23. ZETIA [Concomitant]
  24. CRESTOR [Concomitant]
  25. SINGULAIR [Concomitant]

REACTIONS (4)
  - BLOOD GLUCOSE INCREASED [None]
  - CARDIAC FAILURE [None]
  - CARDIAC FLUTTER [None]
  - DRUG INEFFECTIVE [None]
